FAERS Safety Report 7328446-2 (Version None)
Quarter: 2011Q1

REPORT INFORMATION
  Report Type: 
  Country: None (occurrence: None)
  Receive Date: 20110216
  Receipt Date: 20110201
  Transmission Date: 20110831
  Serious: Yes (Other)
  Sender: FDA-Public Use
  Company Number: 2011SP004782

PATIENT
  Sex: Female

DRUGS (1)
  1. DIPROPHOS (BETAMETHASONE SODIUM PHOSPHATE/ DIPROPIONATE /00582101/) [Suspect]
     Indication: ARTHRALGIA
     Dates: start: 20101201

REACTIONS (1)
  - UNEVALUABLE EVENT [None]
